FAERS Safety Report 14463961 (Version 2)
Quarter: 2018Q1

REPORT INFORMATION
  Report Type: Spontaneous
  Country: AM (occurrence: AM)
  Receive Date: 20180130
  Receipt Date: 20180202
  Transmission Date: 20180509
  Serious: Yes (Other)
  Sender: FDA-Public Use
  Company Number: AM-ROCHE-2057979

PATIENT
  Age: 67 Year
  Sex: Female

DRUGS (1)
  1. AVASTIN [Suspect]
     Active Substance: BEVACIZUMAB
     Indication: OVARIAN CANCER METASTATIC
     Route: 042
     Dates: start: 201601, end: 201603

REACTIONS (2)
  - Metastases to pelvis [Recovering/Resolving]
  - Tumour marker increased [Recovering/Resolving]

NARRATIVE: CASE EVENT DATE: 20160112
